FAERS Safety Report 4510734-6 (Version None)
Quarter: 2004Q4

REPORT INFORMATION
  Report Type: 
  Country: None (occurrence: None)
  Receive Date: 20041122
  Receipt Date: 20041112
  Transmission Date: 20050328
  Serious: Yes (Hospitalization, Other)
  Sender: FDA-Public Use
  Company Number: 2004086364

PATIENT
  Age: 58 Year
  Sex: Female
  Weight: 66 kg

DRUGS (7)
  1. LIPITOR [Suspect]
     Indication: ILL-DEFINED DISORDER
     Dosage: 80 MG (40 MG, 2 IN 1 D), ORAL
     Route: 048
     Dates: end: 20041001
  2. CYCLOSPORINE [Suspect]
     Indication: ILL-DEFINED DISORDER
  3. MYCOPHENOLATE MOFETIL (MYCOPHENOLATE MOFETIL) [Concomitant]
  4. IMMUNE GLOBULIN INTRAVENOUS (HUMAN) [Concomitant]
  5. PREDNISOLONE [Concomitant]
  6. ANTIHYPERTENSIVES (ANTIHYPERTENSIVES) [Concomitant]
  7. IMMUNE GLOBULIN INTRAVENOUS (HUMAN) [Concomitant]

REACTIONS (5)
  - CYTOMEGALOVIRUS INFECTION [None]
  - DRUG INTERACTION [None]
  - MYOPATHY [None]
  - RENAL TRANSPLANT [None]
  - RHABDOMYOLYSIS [None]
